FAERS Safety Report 4653740-3 (Version None)
Quarter: 2005Q2

REPORT INFORMATION
  Report Type: 
  Country: None (occurrence: None)
  Receive Date: 20050504
  Receipt Date: 20050427
  Transmission Date: 20051028
  Serious: Yes (Other)
  Sender: FDA-Public Use
  Company Number: 2005-04-0436

PATIENT
  Age: 58 Year
  Sex: Female
  Weight: 130.6359 kg

DRUGS (5)
  1. PEGASYS [Suspect]
     Indication: HEPATITIS C
     Dosage: 180 MCG QWK
     Dates: start: 20041115, end: 20050407
  2. COPEGUS [Suspect]
     Indication: HEPATITIS C
     Dosage: 1200 MG QD ORAL
     Route: 048
     Dates: start: 20041115, end: 20050407
  3. LEVOXYL [Concomitant]
  4. CELEBREX [Concomitant]
  5. AVALIDE [Concomitant]

REACTIONS (6)
  - CATARACT [None]
  - EYELID MARGIN CRUSTING [None]
  - RETINAL EXUDATES [None]
  - RETINOPATHY [None]
  - STRABISMUS [None]
  - VISUAL ACUITY REDUCED [None]
